FAERS Safety Report 9648337 (Version 2)
Quarter: 2013Q4

REPORT INFORMATION
  Report Type: Spontaneous
  Country: JP (occurrence: JP)
  Receive Date: 20131028
  Receipt Date: 20131028
  Transmission Date: 20140711
  Serious: Yes (Life-Threatening)
  Sender: FDA-Public Use
  Company Number: JP-BAYER-2013-123142

PATIENT
  Age: 55 Year
  Sex: Male
  Weight: 60 kg

DRUGS (6)
  1. STIVARGA [Suspect]
     Indication: GASTROINTESTINAL STROMAL TUMOUR
     Dosage: 160 MG, QD ON FOR 3 WEEKS AND OFF FOR 1 WEEK
     Route: 048
     Dates: start: 20130913, end: 20131003
  2. ONEALFA [Concomitant]
     Indication: PROPHYLAXIS
     Dosage: DAILY DOSE 1 ?G
     Route: 048
  3. CALCIUM LACTATE [Concomitant]
     Indication: PROPHYLAXIS
     Dosage: DAILY DOSE 4 G
     Route: 048
  4. TAKEPRON [Concomitant]
     Indication: PROPHYLAXIS
     Dosage: DAILY DOSE 15 MG
     Route: 048
  5. LOXONIN [Concomitant]
     Indication: GASTROINTESTINAL STROMAL TUMOUR
     Dosage: 60 MG DAILY, PRN
     Route: 048
  6. MUCOSTA [Concomitant]
     Indication: GASTROINTESTINAL STROMAL TUMOUR
     Dosage: 100 MG DAILY, PRN
     Route: 048

REACTIONS (1)
  - Erythema multiforme [Recovered/Resolved]
